FAERS Safety Report 24298451 (Version 1)
Quarter: 2024Q3

REPORT INFORMATION
  Report Type: Spontaneous
  Country: PL (occurrence: PL)
  Receive Date: 20240909
  Receipt Date: 20240909
  Transmission Date: 20241017
  Serious: Yes (Other)
  Sender: BAUSCH AND LOMB
  Company Number: PL-JNJFOC-20240866706

PATIENT
  Age: 76 Year
  Sex: Female

DRUGS (10)
  1. DEXAMETHASONE [Suspect]
     Active Substance: DEXAMETHASONE
     Indication: Plasma cell myeloma
     Route: 065
  2. LENALIDOMIDE [Suspect]
     Active Substance: LENALIDOMIDE
     Indication: Plasma cell myeloma
     Dosage: C5
     Route: 065
     Dates: start: 20240809
  3. LENALIDOMIDE [Suspect]
     Active Substance: LENALIDOMIDE
     Dosage: C2
     Route: 065
     Dates: start: 20240517
  4. LENALIDOMIDE [Suspect]
     Active Substance: LENALIDOMIDE
     Dosage: C4
     Route: 065
     Dates: start: 20240712
  5. LENALIDOMIDE [Suspect]
     Active Substance: LENALIDOMIDE
     Dosage: C3
     Route: 065
     Dates: start: 20240614
  6. LENALIDOMIDE [Suspect]
     Active Substance: LENALIDOMIDE
     Dosage: C1
     Route: 065
     Dates: start: 20240419
  7. DARZALEX [Suspect]
     Active Substance: DARATUMUMAB
     Indication: Plasma cell myeloma
     Dosage: CYCLE 1-2
     Route: 058
  8. DARZALEX [Suspect]
     Active Substance: DARATUMUMAB
     Dosage: CYCLE 7
     Route: 058
  9. DARZALEX [Suspect]
     Active Substance: DARATUMUMAB
     Dosage: CYCLE 3-6
     Route: 058
  10. ZOLEDRONIC ACID [Concomitant]
     Active Substance: ZOLEDRONIC ACID
     Indication: Product used for unknown indication
     Dates: start: 20240809

REACTIONS (3)
  - Neutropenia [Unknown]
  - Glomerular filtration rate decreased [Unknown]
  - Atrial flutter [Unknown]

NARRATIVE: CASE EVENT DATE: 20240401
